FAERS Safety Report 8783145 (Version 1)
Quarter: 2012Q4

REPORT INFORMATION
  Report Type: 
  Country: DE (occurrence: DE)
  Receive Date: 20120913
  Receipt Date: 20120913
  Transmission Date: 20130627
  Serious: Yes (Hospitalization)
  Sender: FDA-Public Use
  Company Number: DE-ARROW-2012-15413

PATIENT
  Age: 59 Year
  Sex: Male
  Weight: 80 kg

DRUGS (1)
  1. RAMIPRIL (UNKNOWN) [Suspect]
     Indication: HYPERTENSION
     Dosage: 5 Mg millgram(s) every Days
     Route: 048
     Dates: start: 20120425

REACTIONS (2)
  - Endotracheal intubation [Not Recovered/Not Resolved]
  - Angioedema [Not Recovered/Not Resolved]
